FAERS Safety Report 5235643-9 (Version None)
Quarter: 2007Q1

REPORT INFORMATION
  Report Type: 
  Country: None (occurrence: None)
  Receive Date: 20070212
  Receipt Date: 20070205
  Transmission Date: 20070707
  Serious: Yes (Other)
  Sender: FDA-Public Use
  Company Number: US-GLAXOSMITHKLINE-A0638352A

PATIENT
  Age: 32 Year
  Sex: Female

DRUGS (4)
  1. VALTREX [Suspect]
     Dosage: 500MG PER DAY
     Route: 048
  2. NORINYL 1+35 [Suspect]
     Indication: CONTRACEPTION
     Dosage: 1TAB PER DAY
     Route: 048
  3. ALLEGRA [Concomitant]
  4. KEPPRA [Concomitant]

REACTIONS (7)
  - CYST [None]
  - DRUG INEFFECTIVE [None]
  - HYPOAESTHESIA [None]
  - INCOHERENT [None]
  - MIGRAINE [None]
  - TENSION HEADACHE [None]
  - VAGINAL HAEMORRHAGE [None]
